FAERS Safety Report 11898427 (Version 1)
Quarter: 2016Q1

REPORT INFORMATION
  Report Type: Spontaneous
  Country: GB (occurrence: GB)
  Receive Date: 20160108
  Receipt Date: 20160108
  Transmission Date: 20160526
  Serious: Yes (Other)
  Sender: FDA-Public Use
  Company Number: GB-SUN PHARMACEUTICAL INDUSTRIES LTD-2015RR-109407

PATIENT

DRUGS (1)
  1. CO-AMOXICLAV [Suspect]
     Active Substance: AMOXICILLIN\CLAVULANIC ACID
     Indication: CHOLECYSTITIS INFECTIVE
     Dosage: 625 MG, TID
     Route: 048
     Dates: start: 20151218, end: 20151220

REACTIONS (7)
  - Dizziness [Unknown]
  - Nausea [Not Recovered/Not Resolved]
  - Hepatic enzyme increased [Unknown]
  - Chromaturia [Not Recovered/Not Resolved]
  - Malaise [Unknown]
  - Jaundice [Not Recovered/Not Resolved]
  - Faeces pale [Not Recovered/Not Resolved]

NARRATIVE: CASE EVENT DATE: 20151218
